FAERS Safety Report 13527377 (Version 4)
Quarter: 2017Q3

REPORT INFORMATION
  Report Type: Spontaneous
  Country: US (occurrence: US)
  Receive Date: 20170509
  Receipt Date: 20170922
  Transmission Date: 20171127
  Serious: Yes (Hospitalization)
  Sender: FDA-Public Use
  Company Number: US-VIFOR (INTERNATIONAL) INC.-VIT-2017-04862

PATIENT
  Age: 71 Year
  Sex: Male
  Weight: 75 kg

DRUGS (12)
  1. CRESTOR [Concomitant]
     Active Substance: ROSUVASTATIN CALCIUM
     Route: 048
  2. HYDROXYZINE HYDROCHLORIDE. [Concomitant]
     Active Substance: HYDROXYZINE HYDROCHLORIDE
     Route: 048
  3. STROVITE [Concomitant]
     Route: 048
  4. ULORIC [Concomitant]
     Active Substance: FEBUXOSTAT
     Route: 048
  5. COMBLGAN [Concomitant]
     Route: 047
  6. MIRCERA [Suspect]
     Active Substance: METHOXY POLYETHYLENE GLYCOL-EPOETIN BETA
     Indication: NEPHROGENIC ANAEMIA
     Dosage: 50 TO 225 MCG ADJUSTED PER ALGORITHAM EVERY TWO WEEKS
     Dates: start: 201602, end: 20170421
  7. CALCITRIOL. [Concomitant]
     Active Substance: CALCITRIOL
     Route: 048
  8. CALCIUM ACETATE. [Concomitant]
     Active Substance: CALCIUM ACETATE
     Route: 048
  9. CARVEDILOL. [Concomitant]
     Active Substance: CARVEDILOL
     Route: 048
  10. ISONIAZID. [Concomitant]
     Active Substance: ISONIAZID
     Indication: TUBERCULIN TEST POSITIVE
     Dates: start: 201611, end: 20170503
  11. EMLA [Concomitant]
     Active Substance: LIDOCAINE\PRILOCAINE
  12. NIFEDICAL XL [Concomitant]
     Active Substance: NIFEDIPINE
     Route: 048

REACTIONS (2)
  - Asthenia [Not Recovered/Not Resolved]
  - Aplasia pure red cell [Unknown]

NARRATIVE: CASE EVENT DATE: 2017
